FAERS Safety Report 9008494 (Version 1)
Quarter: 2012Q4

REPORT INFORMATION
  Report Type: Spontaneous
  Country: US (occurrence: None)
  Receive Date: 20121227
  Receipt Date: 20121227
  Transmission Date: 20130627
  Serious: Yes (Congenital Anomaly)
  Sender: FDA-Public Use
  Company Number: JPI-P-027950

PATIENT

DRUGS (1)
  1. XYREM [Suspect]
     Indication: DRUG EXPOSURE IN UTERO

REACTIONS (5)
  - Trisomy 21 [None]
  - Caesarean section [None]
  - Premature baby [None]
  - Low birth weight baby [None]
  - Maternal drugs affecting foetus [None]
